FAERS Safety Report 7294918-2 (Version None)
Quarter: 2011Q1

REPORT INFORMATION
  Report Type: 
  Country: None (occurrence: None)
  Receive Date: 20110203
  Receipt Date: 20110125
  Transmission Date: 20110831
  Serious: Yes (Disabling, Other)
  Sender: FDA-Public Use
  Company Number: 2011MA000833

PATIENT
  Sex: Male

DRUGS (1)
  1. METOCLOPRAMIDE [Suspect]
     Indication: GASTRIC DISORDER
     Dosage: PO
     Route: 048

REACTIONS (11)
  - DYSKINESIA [None]
  - GRIMACING [None]
  - EXCESSIVE EYE BLINKING [None]
  - EXTRAPYRAMIDAL DISORDER [None]
  - PAIN [None]
  - NERVOUS SYSTEM DISORDER [None]
  - ACTIVITIES OF DAILY LIVING IMPAIRED [None]
  - TARDIVE DYSKINESIA [None]
  - AKATHISIA [None]
  - MULTIPLE INJURIES [None]
  - MENTAL DISORDER [None]
